FAERS Safety Report 15214363 (Version 1)
Quarter: 2018Q4

REPORT INFORMATION
  Report Type: Spontaneous
  Country: US (occurrence: US)
  Receive Date: 20180730
  Receipt Date: 20180730
  Transmission Date: 20190204
  Serious: No
  Sender: FDA-Public Use
  Company Number: US-SA-2018SA200391

PATIENT
  Sex: Female

DRUGS (1)
  1. GOLD BOND ULTIMATE FIRMING NECK AND CHEST CREAM [Suspect]
     Active Substance: PETROLATUM
     Dosage: UNK UNK, QD

REACTIONS (3)
  - Drug ineffective [Unknown]
  - Erythema [Unknown]
  - Rash pruritic [Unknown]
